FAERS Safety Report 7235946-2 (Version None)
Quarter: 2011Q1

REPORT INFORMATION
  Report Type: 
  Country: None (occurrence: None)
  Receive Date: 20110120
  Receipt Date: 20110118
  Transmission Date: 20110831
  Serious: Yes (Hospitalization)
  Sender: FDA-Public Use
  Company Number: A0899022B

PATIENT
  Sex: Female
  Weight: 49 kg

DRUGS (5)
  1. CARBOPLATIN [Suspect]
     Indication: BREAST CANCER
     Route: 042
     Dates: start: 20101006
  2. CEFUROXIME [Suspect]
     Dosage: 250MG TWICE PER DAY
  3. LAPATINIB [Suspect]
     Indication: BREAST CANCER
     Dosage: 750MG PER DAY
     Route: 048
     Dates: start: 20101006
  4. DOCETAXEL [Suspect]
     Dosage: 75MGM2 EVERY 3 WEEKS
     Route: 042
     Dates: start: 20101006
  5. TRASTUZUMAB [Suspect]
     Indication: BREAST CANCER
     Route: 042
     Dates: start: 20101006

REACTIONS (8)
  - INTERNATIONAL NORMALISED RATIO INCREASED [None]
  - DIARRHOEA [None]
  - FATIGUE [None]
  - COLITIS [None]
  - LEUKOPENIA [None]
  - ILEUS [None]
  - NEUTROPENIA [None]
  - DEHYDRATION [None]
